FAERS Safety Report 7548576-X (Version None)
Quarter: 2011Q2

REPORT INFORMATION
  Report Type: 
  Country: None (occurrence: None)
  Receive Date: 20110608
  Receipt Date: 20110428
  Transmission Date: 20111010
  Serious: Yes (Other)
  Sender: FDA-Public Use
  Company Number: USA/USA/11/0018153

PATIENT
  Age: 59 Year
  Sex: Male

DRUGS (1)
  1. TACROLIMUS [Suspect]
     Indication: GRAFT VERSUS HOST DISEASE
     Dosage: 0.5 MG, 1 D, ORAL
     Route: 048
     Dates: start: 20110201

REACTIONS (6)
  - ASPARTATE AMINOTRANSFERASE INCREASED [None]
  - PRURITUS [None]
  - PRODUCT QUALITY ISSUE [None]
  - DIARRHOEA [None]
  - ALANINE AMINOTRANSFERASE INCREASED [None]
  - BLOOD ALKALINE PHOSPHATASE INCREASED [None]
